FAERS Safety Report 9034548 (Version 1)
Quarter: 2013Q1

REPORT INFORMATION
  Report Type: Spontaneous
  Country: US (occurrence: None)
  Receive Date: 20130116
  Receipt Date: 20130116
  Transmission Date: 20140127
  Serious: Yes (Hospitalization)
  Sender: FDA-Public Use
  Company Number: None

PATIENT
  Age: 17 Year
  Sex: Female

DRUGS (1)
  1. ITRACONAZOLE [Suspect]
     Dates: start: 20110121, end: 20110214

REACTIONS (9)
  - Jaundice [None]
  - Cellulitis [None]
  - Hepatic steatosis [None]
  - Liver injury [None]
  - International normalised ratio increased [None]
  - Cholestasis [None]
  - Sepsis [None]
  - Febrile neutropenia [None]
  - Diabetes mellitus [None]
